FAERS Safety Report 9133182 (Version 1)
Quarter: 2013Q1

REPORT INFORMATION
  Report Type: Spontaneous
  Country: FI (occurrence: FI)
  Receive Date: 20130301
  Receipt Date: 20130301
  Transmission Date: 20140127
  Serious: Yes (Death)
  Sender: FDA-Public Use
  Company Number: FI-009507513-1302FIN012114

PATIENT
  Age: 48 Year
  Sex: Male

DRUGS (9)
  1. ESMERON [Suspect]
     Indication: HYPOTONIA
     Dosage: UNK UNK, QD
     Route: 042
     Dates: start: 20120828, end: 20120828
  2. MIDAZOLAM [Concomitant]
     Indication: GENERAL ANAESTHESIA
     Dosage: UNK
     Route: 042
     Dates: start: 20120828, end: 20120828
  3. PROPOFOL [Concomitant]
     Indication: GENERAL ANAESTHESIA
     Dosage: UNK
     Route: 042
     Dates: start: 20120828, end: 20120828
  4. PROPOFOL [Concomitant]
     Indication: GENERAL ANAESTHESIA
     Dosage: UNK
     Route: 042
     Dates: start: 20120828, end: 20120828
  5. FENTANYL [Concomitant]
     Indication: GENERAL ANAESTHESIA
     Dosage: UNK
     Route: 042
     Dates: start: 20120828, end: 20120828
  6. EPINEPHRINE [Concomitant]
     Indication: RESUSCITATION
     Dosage: 19 MG, UNK
     Route: 042
     Dates: start: 20120828
  7. NEO-SYNEPHRINE [Concomitant]
     Indication: RESUSCITATION
     Dosage: 0.1 MG, UNK
     Route: 042
     Dates: start: 20120828
  8. CORDARONE [Concomitant]
     Indication: RESUSCITATION
     Dosage: 50 MG, UNK
     Route: 042
     Dates: start: 20120828
  9. SOLU-MEDROL [Concomitant]
     Indication: RESUSCITATION
     Dosage: 80 MG, UNK
     Route: 042
     Dates: start: 20120828

REACTIONS (2)
  - Cardiac arrest [Fatal]
  - Anaphylactic reaction [Fatal]
